FAERS Safety Report 6035942-7 (Version None)
Quarter: 2009Q1

REPORT INFORMATION
  Report Type: 
  Country: None (occurrence: None)
  Receive Date: 20090113
  Receipt Date: 20090109
  Transmission Date: 20090719
  Serious: Yes (Death)
  Sender: FDA-Public Use
  Company Number: B0553952A

PATIENT
  Sex: Female

DRUGS (1)
  1. RYTHMOL [Suspect]
     Route: 065
     Dates: start: 19880101

REACTIONS (1)
  - METASTATIC CARCINOMA OF THE BLADDER [None]
